FAERS Safety Report 14019947 (Version 1)
Quarter: 2017Q3

REPORT INFORMATION
  Report Type: Spontaneous
  Country: US (occurrence: US)
  Receive Date: 20170928
  Receipt Date: 20170928
  Transmission Date: 20171128
  Serious: No
  Sender: FDA-Public Use
  Company Number: US-ALLERGAN-1734145US

PATIENT
  Age: 71 Year
  Sex: Female

DRUGS (4)
  1. VRAYLAR [Suspect]
     Active Substance: CARIPRAZINE
     Dosage: 1.5 MG, UNK
     Route: 065
     Dates: start: 2017
  2. KLONOPIN [Concomitant]
     Active Substance: CLONAZEPAM
     Indication: ANXIETY
     Dosage: 0.25
     Route: 065
  3. VRAYLAR [Suspect]
     Active Substance: CARIPRAZINE
     Indication: BIPOLAR DISORDER
     Dosage: 3 MG, UNK
     Route: 065
     Dates: start: 2017
  4. VRAYLAR [Suspect]
     Active Substance: CARIPRAZINE
     Dosage: 1.5 MG, UNK
     Route: 065
     Dates: start: 2017

REACTIONS (19)
  - Prehypertension [Unknown]
  - Tremor [Not Recovered/Not Resolved]
  - Musculoskeletal stiffness [Unknown]
  - Stomatitis [Unknown]
  - Vision blurred [Not Recovered/Not Resolved]
  - Restless legs syndrome [Not Recovered/Not Resolved]
  - Chills [Not Recovered/Not Resolved]
  - Oral herpes [Unknown]
  - Drooling [Unknown]
  - Euphoric mood [Unknown]
  - Fatigue [Not Recovered/Not Resolved]
  - Akathisia [Not Recovered/Not Resolved]
  - Bradycardia [Unknown]
  - Lip swelling [Unknown]
  - Constipation [Unknown]
  - Dysphagia [Unknown]
  - Dry mouth [Unknown]
  - Polyuria [Unknown]
  - Restlessness [Not Recovered/Not Resolved]

NARRATIVE: CASE EVENT DATE: 2017
